FAERS Safety Report 23970640 (Version 2)
Quarter: 2024Q2

REPORT INFORMATION
  Report Type: Spontaneous
  Country: US (occurrence: US)
  Receive Date: 20240613
  Receipt Date: 20240629
  Transmission Date: 20240716
  Serious: Yes (Hospitalization, Other)
  Sender: FDA-Public Use
  Company Number: US-BAXTER-2024BAX019134

PATIENT
  Age: 30 Year
  Sex: Female
  Weight: 88.8 kg

DRUGS (12)
  1. CYCLOPHOSPHAMIDE [Suspect]
     Active Substance: CYCLOPHOSPHAMIDE
     Indication: Primary mediastinal large B-cell lymphoma
     Dosage: 750 MG/M2, ONCE PER CYCLE (CYCLIC)
     Route: 042
     Dates: start: 20240222
  2. CYCLOPHOSPHAMIDE [Suspect]
     Active Substance: CYCLOPHOSPHAMIDE
     Dosage: UNK, LAST DOSE BEFORE SAE ONSET
     Route: 042
     Dates: start: 20240424
  3. DOXORUBICIN [Suspect]
     Active Substance: DOXORUBICIN
     Indication: Primary mediastinal large B-cell lymphoma
     Dosage: 50 MG/M2, ONCE PER CYCLE (CYCLIC)
     Route: 042
     Dates: start: 20240222
  4. DOXORUBICIN [Suspect]
     Active Substance: DOXORUBICIN
     Dosage: UNK, LAST DOSE BEFORE SAE ONSET
     Route: 042
     Dates: start: 20240424
  5. RITUXIMAB [Suspect]
     Active Substance: RITUXIMAB
     Indication: Primary mediastinal large B-cell lymphoma
     Dosage: 375 MG/M2, ONCE PER CYCLE (CYCLIC)
     Route: 042
     Dates: start: 20240222
  6. RITUXIMAB [Suspect]
     Active Substance: RITUXIMAB
     Dosage: UNK, LAST DOSE BEFORE SAE ONSET
     Route: 042
     Dates: start: 20240424
  7. BRENTUXIMAB VEDOTIN [Suspect]
     Active Substance: BRENTUXIMAB VEDOTIN
     Indication: Primary mediastinal large B-cell lymphoma
     Dosage: 1.8 MG/KG, ONCE EVERY 21 DAYS
     Route: 042
     Dates: start: 20240112
  8. BRENTUXIMAB VEDOTIN [Suspect]
     Active Substance: BRENTUXIMAB VEDOTIN
     Dosage: UNK, LAST DOSE BEFORE SAE ONSET
     Route: 065
     Dates: start: 20240424
  9. NIVOLUMAB [Suspect]
     Active Substance: NIVOLUMAB
     Indication: Primary mediastinal large B-cell lymphoma
     Dosage: 240 MG, ONCE EVERY 21 DAYS
     Route: 042
     Dates: start: 20240112
  10. NIVOLUMAB [Suspect]
     Active Substance: NIVOLUMAB
     Dosage: UNK, LAST DOSE BEFORE SAE ONSET
     Route: 042
     Dates: start: 20240424
  11. PREDNISONE [Suspect]
     Active Substance: PREDNISONE
     Indication: Primary mediastinal large B-cell lymphoma
     Dosage: 100 MG, QD, DAY 1-5 EVERY CYCLE (CYCLIC)
     Route: 048
     Dates: start: 20240222
  12. PREDNISONE [Suspect]
     Active Substance: PREDNISONE
     Dosage: UNK, LAST DOSE BEFORE SAE ONSET
     Route: 048
     Dates: start: 20240424

REACTIONS (3)
  - Febrile neutropenia [Not Recovered/Not Resolved]
  - Ill-defined disorder [Unknown]
  - Cough [Unknown]

NARRATIVE: CASE EVENT DATE: 20240501
